FAERS Safety Report 8961100 (Version 1)
Quarter: 2012Q4

REPORT INFORMATION
  Report Type: 
  Country: US (occurrence: US)
  Receive Date: 20121212
  Receipt Date: 20121212
  Transmission Date: 20130627
  Serious: Yes (Hospitalization)
  Sender: FDA-Public Use
  Company Number: US-PFIZER INC-2012310528

PATIENT
  Sex: Male

DRUGS (1)
  1. TIKOSYN [Suspect]
     Indication: VENTRICULAR ARRHYTHMIA
     Dosage: UNK

REACTIONS (2)
  - Cardiac failure [Unknown]
  - Off label use [Unknown]
